FAERS Safety Report 5886181-1 (Version None)
Quarter: 2008Q3

REPORT INFORMATION
  Report Type: 
  Country: None (occurrence: None)
  Receive Date: 20080917
  Receipt Date: 20080905
  Transmission Date: 20090109
  Serious: Yes (Death)
  Sender: FDA-Public Use
  Company Number: US-WATSON-2008-05434

PATIENT
  Age: 77 Year
  Sex: Female

DRUGS (2)
  1. HYDROCODONE BITARTRATE/ACETAMINOPHEN UNKNOWN STRENGTH (WATSON) [Suspect]
     Indication: PAIN
     Dosage: UNK
     Route: 065
  2. FENTANYL UNKNOWN STRENGTH (WATSON LABORATORIES) [Suspect]
     Indication: PAIN
     Dosage: UNK
     Route: 062

REACTIONS (2)
  - DRUG ADMINISTRATION ERROR [None]
  - RESPIRATORY DEPRESSION [None]
